FAERS Safety Report 14093372 (Version 1)
Quarter: 2017Q4

REPORT INFORMATION
  Report Type: Spontaneous
  Country: DE (occurrence: DE)
  Receive Date: 20171016
  Receipt Date: 20171016
  Transmission Date: 20180321
  Serious: Yes (Other)
  Sender: FDA-Public Use
  Company Number: DE-TEVA-814455GER

PATIENT
  Age: 58 Year
  Sex: Male
  Weight: 85 kg

DRUGS (4)
  1. RALTEGRAVIR. [Interacting]
     Active Substance: RALTEGRAVIR
     Indication: HIV INFECTION
     Dosage: 800 MILLIGRAM DAILY;
     Route: 048
     Dates: start: 200602
  2. RITONAVIR. [Interacting]
     Active Substance: RITONAVIR
     Indication: HIV INFECTION
     Route: 048
     Dates: start: 200602
  3. CEFUROXIM [Suspect]
     Active Substance: CEFUROXIME
     Indication: ABSCESS
     Dosage: 1000 MILLIGRAM DAILY;
     Route: 048
     Dates: start: 201706, end: 20170904
  4. LOPINAVIR [Interacting]
     Active Substance: LOPINAVIR
     Indication: HIV INFECTION
     Route: 048
     Dates: start: 200602

REACTIONS (3)
  - Drug effect decreased [Unknown]
  - Drug interaction [Unknown]
  - Blood HIV RNA increased [Unknown]

NARRATIVE: CASE EVENT DATE: 20170809
